FAERS Safety Report 9704604 (Version 1)
Quarter: 2013Q4

REPORT INFORMATION
  Report Type: Spontaneous
  Country: GB (occurrence: GB)
  Receive Date: 20131122
  Receipt Date: 20131122
  Transmission Date: 20140711
  Serious: Yes (Other)
  Sender: FDA-Public Use
  Company Number: GB-WATSON-2013-21391

PATIENT
  Age: 74 Year
  Sex: Female
  Weight: 63 kg

DRUGS (3)
  1. OXYBUTYNIN [Suspect]
     Indication: NOCTURIA
     Dosage: ONE THEN TWO, TWICE DAILY.
     Route: 048
     Dates: start: 20130719, end: 20130919
  2. ZANTAC [Concomitant]
     Indication: GASTRIC PH DECREASED
     Dosage: 75 MG, UNKNOWN
     Route: 048
     Dates: start: 1986
  3. LEVOTHYROXINE [Concomitant]
     Indication: HYPOTHYROIDISM
     Dosage: STARTED 5 YEARS AGO
     Route: 048

REACTIONS (6)
  - Heart rate irregular [Unknown]
  - Extrasystoles [Unknown]
  - Disorientation [Unknown]
  - Decreased appetite [Unknown]
  - Dyspepsia [Unknown]
  - Asthenia [Unknown]
